FAERS Safety Report 20487550 (Version 2)
Quarter: 2025Q3

REPORT INFORMATION
  Report Type: Spontaneous
  Country: EU (occurrence: EU)
  Receive Date: 20220218
  Receipt Date: 20250712
  Transmission Date: 20251021
  Serious: Yes (Death, Other)
  Sender: AUROBINDO
  Company Number: EU-NAPPMUNDI-GBR-2022-0094673

PATIENT
  Age: 77 Year
  Sex: Female

DRUGS (8)
  1. FENTANYL [Suspect]
     Active Substance: FENTANYL
     Indication: Cancer pain
     Dosage: 100 MICROGRAM, EVERY HOUR
     Route: 062
  2. FENTANYL [Suspect]
     Active Substance: FENTANYL
     Dosage: 25 MICROGRAM, EVERY HOUR
     Route: 062
  3. HYDROMORPHONE [Suspect]
     Active Substance: HYDROMORPHONE
     Indication: Cancer pain
     Dosage: 10 MILLIGRAM, ONCE A DAY (10 MG, DAILY)
     Route: 051
  4. HYDROMORPHONE [Suspect]
     Active Substance: HYDROMORPHONE
     Route: 051
  5. METAMIZOLE [Suspect]
     Active Substance: METAMIZOLE
     Indication: Cancer pain
     Dosage: 5 GRAM, ONCE A DAY (5 G, DAILY)
     Route: 051
  6. METAMIZOLE [Suspect]
     Active Substance: METAMIZOLE
     Dosage: 1 GRAM, FOUR TIMES/DAY
     Route: 048
  7. BUTYLSCOPOLAMINE BROMIDE [Concomitant]
     Active Substance: BUTYLSCOPOLAMINE BROMIDE
     Indication: Product used for unknown indication
     Route: 065
  8. DEXAMETHASONE [Concomitant]
     Active Substance: DEXAMETHASONE
     Indication: Product used for unknown indication
     Route: 065

REACTIONS (1)
  - Intestinal obstruction [Fatal]
